FAERS Safety Report 11866138 (Version 1)
Quarter: 2015Q4

REPORT INFORMATION
  Report Type: Spontaneous
  Country: US (occurrence: US)
  Receive Date: 20151223
  Receipt Date: 20151223
  Transmission Date: 20160305
  Serious: No
  Sender: FDA-Public Use
  Company Number: US-009507513-1512USA009301

PATIENT
  Age: 62 Year
  Sex: Male

DRUGS (3)
  1. LISINOPRIL. [Suspect]
     Active Substance: LISINOPRIL
     Indication: HYPERTENSION
     Dosage: UNK
     Route: 048
     Dates: start: 20151101, end: 20151213
  2. LISINOPRIL. [Suspect]
     Active Substance: LISINOPRIL
     Indication: GLUCOSE TOLERANCE IMPAIRED
  3. METFORMIN [Concomitant]
     Active Substance: METFORMIN HYDROCHLORIDE

REACTIONS (1)
  - Ageusia [Recovering/Resolving]

NARRATIVE: CASE EVENT DATE: 20151201
